FAERS Safety Report 13532541 (Version 1)
Quarter: 2017Q2

REPORT INFORMATION
  Report Type: Report from Study
  Country: CA (occurrence: CA)
  Receive Date: 20170510
  Receipt Date: 20170510
  Transmission Date: 20170830
  Serious: Yes (Hospitalization)
  Sender: FDA-Public Use
  Company Number: CA-EMD SERONO-E2B_80060436

PATIENT
  Age: 58 Year
  Sex: Female
  Weight: 55 kg

DRUGS (14)
  1. LORAZEPAM. [Concomitant]
     Active Substance: LORAZEPAM
     Indication: ANXIETY
     Dosage: 1 MG, DAILY AS NEEDED
     Route: 048
     Dates: start: 20161103
  2. SYNTHROID [Concomitant]
     Active Substance: LEVOTHYROXINE SODIUM
     Indication: HYPOTHYROIDISM
     Dosage: 0.112 UG, DAILY
     Route: 048
     Dates: start: 2012
  3. SALMON OIL [Concomitant]
     Active Substance: FISH OIL
     Indication: ROUTINE HEALTH MAINTENANCE
     Dosage: 1 DF, DAILY
     Route: 048
     Dates: start: 2015
  4. CAELYX [Suspect]
     Active Substance: DOXORUBICIN HYDROCHLORIDE
     Indication: OVARIAN CANCER
     Dosage: 35 MG, EVERY 4 WEEKS
     Route: 042
     Dates: start: 20160211, end: 20170113
  5. BENADRYL [Concomitant]
     Active Substance: DIPHENHYDRAMINE HYDROCHLORIDE
     Indication: PROPHYLAXIS
     Dosage: 50 MG, PRIOR TO AVELUMAB
     Route: 048
     Dates: start: 20160211
  6. PROCHLORPERAZINE. [Concomitant]
     Active Substance: PROCHLORPERAZINE
     Indication: PROPHYLAXIS OF NAUSEA AND VOMITING
     Dosage: 10 MG, AS NEEDED EVERY 6 HOURS
     Route: 048
     Dates: start: 20160211
  7. TRAMADOL. [Concomitant]
     Active Substance: TRAMADOL
     Indication: CHEST PAIN
     Dosage: 1-2 TABLETS, 2X/DAY, AS NEEDED
     Route: 048
     Dates: start: 20170206, end: 20170206
  8. KELP /00082201/ [Concomitant]
     Active Substance: IODINE
     Indication: ROUTINE HEALTH MAINTENANCE
     Dosage: 2 GTT, DAILY
     Route: 048
     Dates: start: 2015
  9. TYLENOL [Concomitant]
     Active Substance: ACETAMINOPHEN
     Indication: PROPHYLAXIS
     Dosage: 650 MG, PRIOR TO AVELUMAB
     Route: 048
     Dates: start: 20160211
  10. MSB0010718C [Suspect]
     Active Substance: AVELUMAB
     Indication: OVARIAN CANCER
     Dosage: 608 MG, EVERY 2 WEEKS
     Route: 042
     Dates: start: 20160211, end: 20170127
  11. ONDANSETRON [Concomitant]
     Active Substance: ONDANSETRON
     Indication: PROPHYLAXIS OF NAUSEA AND VOMITING
     Dosage: 16 MG, PRE-CHEMO DAY 1 OF EACY CYCLE
     Route: 048
     Dates: start: 20160211
  12. VITAMIN D /00107901/ [Concomitant]
     Active Substance: ERGOCALCIFEROL
     Indication: ROUTINE HEALTH MAINTENANCE
     Dosage: 1000 IU, DAILY
     Route: 048
     Dates: start: 2015
  13. COENZYME Q10 [Concomitant]
     Active Substance: UBIDECARENONE
     Indication: ROUTINE HEALTH MAINTENANCE
     Dosage: 1 DF, DAILY
     Route: 048
     Dates: start: 2015
  14. ZOPICLONE [Concomitant]
     Active Substance: ZOPICLONE
     Indication: INSOMNIA
     Dosage: 5 MG, DAILY AT NIGHT AS NEEDED
     Route: 048
     Dates: start: 2014

REACTIONS (1)
  - Fatigue [Recovered/Resolved]

NARRATIVE: CASE EVENT DATE: 20170210
